FAERS Safety Report 4706875-0 (Version None)
Quarter: 2005Q3

REPORT INFORMATION
  Report Type: 
  Country: None (occurrence: None)
  Receive Date: 20050706
  Receipt Date: 20041003
  Transmission Date: 20060218
  Serious: Yes (Life-Threatening, Hospitalization)
  Sender: FDA-Public Use
  Company Number: DE-MERCK-0410DEU00017

PATIENT
  Age: 62 Year
  Sex: Female

DRUGS (7)
  1. VIOXX [Suspect]
     Indication: OSTEOARTHRITIS
     Route: 048
     Dates: start: 20040801, end: 20041001
  2. VIOXX [Suspect]
     Route: 048
     Dates: start: 20030530, end: 20040701
  3. MONTELUKAST SODIUM [Concomitant]
     Route: 065
  4. PENTAERYTHRITOL TETRANITRATE [Concomitant]
     Route: 065
  5. BUDESONIDE AND FORMOTEROL FUMARATE [Concomitant]
     Route: 065
  6. SIMVASTATIN [Concomitant]
     Route: 065
  7. FENOTEROL HYDROBROMIDE AND IPRATROPIUM BROMIDE [Concomitant]
     Route: 065

REACTIONS (6)
  - ANGINA PECTORIS [None]
  - ARTHROPATHY [None]
  - CORONARY ARTERY DISEASE [None]
  - CORONARY ARTERY STENOSIS [None]
  - SPINAL DISORDER [None]
  - VENTRICULAR TACHYCARDIA [None]
